FAERS Safety Report 25575649 (Version 3)
Quarter: 2025Q3

REPORT INFORMATION
  Report Type: Report from Study
  Country: US (occurrence: US)
  Receive Date: 20250718
  Receipt Date: 20250821
  Transmission Date: 20251021
  Serious: No
  Sender: SUNOVION
  Company Number: US-SUMITOMO PHARMA SWITZERLAND GMBH-2025SPA008198

PATIENT
  Age: 72 Year
  Sex: Male

DRUGS (9)
  1. ORGOVYX [Suspect]
     Active Substance: RELUGOLIX
     Indication: Prostate cancer
     Route: 048
  2. ORGOVYX [Suspect]
     Active Substance: RELUGOLIX
     Route: 048
  3. ATORVASTATIN CALCIUM [Concomitant]
     Active Substance: ATORVASTATIN CALCIUM
  4. CALCITRIOL [Concomitant]
     Active Substance: CALCITRIOL
  5. CARVEDILOL [Concomitant]
     Active Substance: CARVEDILOL
  6. FLOMAX [Concomitant]
     Active Substance: TAMSULOSIN HYDROCHLORIDE
  7. FLONASE HEADACHE AND ALLERGY RELIEF [Concomitant]
     Active Substance: ACETAMINOPHEN\CHLORPHENIRAMINE MALEATE\PHENYLEPHRINE HYDROCHLORIDE
     Route: 045
  8. LOSARTAN [Concomitant]
     Active Substance: LOSARTAN
  9. TADALAFIL [Concomitant]
     Active Substance: TADALAFIL

REACTIONS (7)
  - Gait disturbance [Recovering/Resolving]
  - Hypotension [Unknown]
  - Lethargy [Unknown]
  - Dizziness postural [Unknown]
  - Pain in extremity [Recovering/Resolving]
  - Fatigue [Unknown]
  - Hot flush [Unknown]
